FAERS Safety Report 16458724 (Version 1)
Quarter: 2019Q2

REPORT INFORMATION
  Report Type: Spontaneous
  Country: US (occurrence: US)
  Receive Date: 20190620
  Receipt Date: 20190620
  Transmission Date: 20190711
  Serious: No
  Sender: FDA-Public Use
  Company Number: US-THERAPEUTICSMD-2019TMD00713

PATIENT
  Age: 65 Year
  Sex: Female
  Weight: 68.03 kg

DRUGS (2)
  1. IMVEXXY [Suspect]
     Active Substance: ESTRADIOL
     Indication: ABDOMINAL DISCOMFORT
  2. IMVEXXY [Suspect]
     Active Substance: ESTRADIOL
     Indication: POLLAKIURIA
     Dosage: 4 ?G, 1X/WEEK BEFORE BED
     Route: 067
     Dates: start: 201812, end: 201812

REACTIONS (5)
  - Vulvovaginal pruritus [Recovered/Resolved]
  - Off label use [Recovered/Resolved]
  - Vaginal discharge [Recovered/Resolved]
  - Product residue present [Recovered/Resolved]
  - Vulvovaginal discomfort [Recovered/Resolved]

NARRATIVE: CASE EVENT DATE: 201812
